FAERS Safety Report 5490320-4 (Version None)
Quarter: 2007Q4

REPORT INFORMATION
  Report Type: 
  Country: None (occurrence: None)
  Receive Date: 20071017
  Receipt Date: 20071011
  Transmission Date: 20080405
  Serious: No
  Sender: FDA-Public Use
  Company Number: ADE# 07-012

PATIENT
  Age: 91 Year
  Sex: Female
  Weight: 61.2356 kg

DRUGS (6)
  1. METOPROLOL TARTRATE TABLETS (ROUND), USP, 50MG [Suspect]
     Indication: BLOOD PRESSURE
     Dosage: 1 TABLET DAILY
     Dates: start: 20070715, end: 20070901
  2. LASIX [Concomitant]
  3. LIPITOR [Concomitant]
  4. ALTACE [Concomitant]
  5. IMDUR [Concomitant]
  6. PLAVIX [Concomitant]

REACTIONS (1)
  - ALOPECIA [None]
